FAERS Safety Report 14471401 (Version 1)
Quarter: 2018Q1

REPORT INFORMATION
  Report Type: Spontaneous
  Country: GB (occurrence: GB)
  Receive Date: 20180131
  Receipt Date: 20180131
  Transmission Date: 20180509
  Serious: Yes (Disabling)
  Sender: FDA-Public Use
  Company Number: GB-TEVA-2018-GB-852758

PATIENT
  Age: 78 Year
  Sex: Male
  Weight: 115 kg

DRUGS (17)
  1. PARACETAMOL [Concomitant]
     Active Substance: ACETAMINOPHEN
     Indication: ANAESTHETIC PREMEDICATION
     Dates: start: 20171208
  2. TRANEXAMIC ACID. [Concomitant]
     Active Substance: TRANEXAMIC ACID
  3. MORPHINE [Concomitant]
     Active Substance: MORPHINE
  4. GABAPENTIN. [Suspect]
     Active Substance: GABAPENTIN
     Indication: ANAESTHETIC PREMEDICATION
     Route: 048
     Dates: start: 20171208, end: 20171208
  5. ATRACURIUM [Concomitant]
     Active Substance: ATRACURIUM
  6. GENERICS UK BISOPROLOL [Concomitant]
  7. CEFUROXIME. [Concomitant]
     Active Substance: CEFUROXIME
  8. ACETYLSALICYLIC ACID [Concomitant]
     Active Substance: ASPIRIN
  9. SULFASALAZINE. [Concomitant]
     Active Substance: SULFASALAZINE
     Dosage: 2000 MILLIGRAM DAILY;
  10. GLICLAZIDE [Concomitant]
     Active Substance: GLICLAZIDE
  11. SIMVASTATIN. [Concomitant]
     Active Substance: SIMVASTATIN
  12. CANDESARTAN. [Concomitant]
     Active Substance: CANDESARTAN
  13. PROPOFOL. [Concomitant]
     Active Substance: PROPOFOL
  14. FENTANYL CITRATE. [Concomitant]
     Active Substance: FENTANYL CITRATE
  15. METFORMIN [Concomitant]
     Active Substance: METFORMIN HYDROCHLORIDE
     Dosage: 2000 MILLIGRAM DAILY;
  16. ZOMORPH [Concomitant]
     Active Substance: MORPHINE SULFATE
     Indication: ANAESTHETIC PREMEDICATION
     Dates: start: 20171208
  17. RANITIDINE HYDROCHLORIDE. [Concomitant]
     Active Substance: RANITIDINE HYDROCHLORIDE
     Dosage: 300 MILLIGRAM DAILY;

REACTIONS (1)
  - Depressed level of consciousness [Recovered/Resolved]

NARRATIVE: CASE EVENT DATE: 20171208
